FAERS Safety Report 8239291-8 (Version None)
Quarter: 2012Q1

REPORT INFORMATION
  Report Type: 
  Country: None (occurrence: None)
  Receive Date: 20120328
  Receipt Date: 20120320
  Transmission Date: 20120608
  Serious: Yes (Other)
  Sender: FDA-Public Use
  Company Number: US-AMGEN-USASP2012017943

PATIENT
  Age: 51 Year
  Sex: Female

DRUGS (2)
  1. TREXALL [Concomitant]
     Dosage: 3 MG, QWK
     Dates: start: 20120101
  2. ENBREL [Suspect]
     Indication: PSORIATIC ARTHROPATHY
     Dosage: 50 MG, QWK
     Dates: start: 20110301

REACTIONS (6)
  - JOINT STIFFNESS [None]
  - SKIN DISCOLOURATION [None]
  - AMNESIA [None]
  - NASOPHARYNGITIS [None]
  - PSORIASIS [None]
  - DYSPHONIA [None]
